FAERS Safety Report 8157373-6 (Version None)
Quarter: 2012Q1

REPORT INFORMATION
  Report Type: 
  Country: None (occurrence: None)
  Receive Date: 20120103
  Receipt Date: 20110930
  Transmission Date: 20120608
  Serious: No
  Sender: FDA-Public Use
  Company Number: AE-2011-001942

PATIENT
  Sex: Male
  Weight: 54.4316 kg

DRUGS (3)
  1. RIBAVIRIN [Concomitant]
  2. INCIVEK [Suspect]
     Dosage: 1125 MG (375 MG,1 IN 8 HR), ORAL
     Route: 048
     Dates: start: 20110706
  3. PEGASYS [Concomitant]

REACTIONS (5)
  - ANTITHROMBIN III DECREASED [None]
  - DYSPNOEA [None]
  - FATIGUE [None]
  - PRURITUS [None]
  - INFLUENZA LIKE ILLNESS [None]
